FAERS Safety Report 6492519-7 (Version None)
Quarter: 2009Q4

REPORT INFORMATION
  Report Type: 
  Country: None (occurrence: None)
  Receive Date: 20091214
  Receipt Date: 20091203
  Transmission Date: 20100525
  Serious: Yes (Hospitalization)
  Sender: FDA-Public Use
  Company Number: NL-ASTRAZENECA-2009SE28945

PATIENT
  Age: 23185 Day
  Sex: Female
  Weight: 88 kg

DRUGS (6)
  1. ARIMIDEX [Suspect]
     Indication: BREAST CANCER
     Route: 048
     Dates: start: 20070707
  2. FENPROCOUMON [Concomitant]
     Indication: ANTICOAGULANT THERAPY
     Route: 048
     Dates: end: 20090803
  3. ALENDRONINEZUR [Concomitant]
     Indication: OSTEOPOROSIS
     Route: 048
     Dates: start: 20090128
  4. CALCICHEW [Concomitant]
     Indication: OSTEOPOROSIS
     Route: 048
     Dates: start: 20090126, end: 20090803
  5. PARACETAMOL [Concomitant]
     Indication: ARTHRALGIA
     Route: 048
     Dates: start: 20090801
  6. TRAMADOL HCL [Concomitant]
     Indication: ARTHRALGIA
     Route: 048
     Dates: start: 20090801

REACTIONS (2)
  - ABSCESS [None]
  - WRIST FRACTURE [None]
